FAERS Safety Report 10666300 (Version 19)
Quarter: 2017Q4

REPORT INFORMATION
  Report Type: Report from Study
  Country: FI (occurrence: FI)
  Receive Date: 20141220
  Receipt Date: 20171207
  Transmission Date: 20180320
  Serious: Yes (Hospitalization, Other)
  Sender: FDA-Public Use
  Company Number: FI-ROCHE-1497431

PATIENT
  Age: 66 Year
  Sex: Female
  Weight: 63.7 kg

DRUGS (37)
  1. PARATABS [Concomitant]
     Route: 048
     Dates: start: 20150213, end: 20150213
  2. HISTEC [Concomitant]
     Active Substance: CETIRIZINE HYDROCHLORIDE
     Route: 048
     Dates: start: 20150213, end: 20150213
  3. HISTEC [Concomitant]
     Active Substance: CETIRIZINE HYDROCHLORIDE
     Route: 048
     Dates: start: 20150420, end: 20150420
  4. SOLU-MEDROL [Concomitant]
     Active Substance: METHYLPREDNISOLONE SODIUM SUCCINATE
     Route: 042
     Dates: start: 20150518, end: 20150518
  5. OBINUTUZUMAB. [Suspect]
     Active Substance: OBINUTUZUMAB
     Indication: CHRONIC LYMPHOCYTIC LEUKAEMIA
     Dosage: C1 D1 TEMPORARILY INTERRUPTED DUE TO INFUSON RELATED REACTION
     Route: 042
     Dates: start: 20141124, end: 20141124
  6. COTRIM FORTE [Concomitant]
     Active Substance: SULFAMETHOXAZOLE\TRIMETHOPRIM
     Dosage: DAILY DOSE: 160/800MG
     Route: 048
     Dates: start: 20141128, end: 20150613
  7. OBINUTUZUMAB. [Suspect]
     Active Substance: OBINUTUZUMAB
     Dosage: C2 D1
     Route: 042
     Dates: start: 20141222
  8. PARATABS [Concomitant]
     Indication: PROPHYLAXIS
     Route: 048
     Dates: start: 20141124, end: 20141124
  9. PARATABS [Concomitant]
     Route: 048
     Dates: start: 20141209, end: 20141209
  10. PARATABS [Concomitant]
     Route: 048
     Dates: start: 20141202, end: 20141202
  11. HISTEC [Concomitant]
     Active Substance: CETIRIZINE HYDROCHLORIDE
     Route: 048
     Dates: start: 20141202, end: 20141202
  12. SOLU-MEDROL [Concomitant]
     Active Substance: METHYLPREDNISOLONE SODIUM SUCCINATE
     Route: 042
     Dates: start: 20150320, end: 20150320
  13. SOLU-MEDROL [Concomitant]
     Active Substance: METHYLPREDNISOLONE SODIUM SUCCINATE
     Route: 042
     Dates: start: 20141202, end: 20141202
  14. PARATABS [Concomitant]
     Route: 048
     Dates: start: 20141125, end: 20141125
  15. PARATABS [Concomitant]
     Route: 048
     Dates: start: 20150518, end: 20150518
  16. HISTEC [Concomitant]
     Active Substance: CETIRIZINE HYDROCHLORIDE
     Route: 048
     Dates: start: 20150518, end: 20150518
  17. SOLU-MEDROL [Concomitant]
     Active Substance: METHYLPREDNISOLONE SODIUM SUCCINATE
     Route: 042
     Dates: start: 20141222, end: 20141222
  18. SOLU-MEDROL [Concomitant]
     Active Substance: METHYLPREDNISOLONE SODIUM SUCCINATE
     Route: 042
     Dates: start: 20150213, end: 20150213
  19. PARATABS [Concomitant]
     Route: 048
     Dates: start: 20150420, end: 20150420
  20. HISTEC [Concomitant]
     Active Substance: CETIRIZINE HYDROCHLORIDE
     Route: 048
     Dates: start: 20141125, end: 20141125
  21. ZYLORIC [Concomitant]
     Active Substance: ALLOPURINOL
     Route: 048
     Dates: start: 20141124, end: 20150320
  22. SOLU-MEDROL [Concomitant]
     Active Substance: METHYLPREDNISOLONE SODIUM SUCCINATE
     Route: 042
     Dates: start: 20141125, end: 20141125
  23. OBINUTUZUMAB. [Suspect]
     Active Substance: OBINUTUZUMAB
     Route: 042
     Dates: start: 20150518, end: 20150518
  24. HISTEC [Concomitant]
     Active Substance: CETIRIZINE HYDROCHLORIDE
     Route: 048
     Dates: start: 20150320, end: 20150320
  25. SOLU-MEDROL [Concomitant]
     Active Substance: METHYLPREDNISOLONE SODIUM SUCCINATE
     Indication: CYTOKINE RELEASE SYNDROME
     Route: 042
     Dates: start: 20141124, end: 20141124
  26. OBINUTUZUMAB. [Suspect]
     Active Substance: OBINUTUZUMAB
     Route: 042
     Dates: start: 20141125, end: 20141125
  27. OBINUTUZUMAB. [Suspect]
     Active Substance: OBINUTUZUMAB
     Dosage: C1 D8
     Route: 042
     Dates: start: 20141202, end: 20141202
  28. OBINUTUZUMAB. [Suspect]
     Active Substance: OBINUTUZUMAB
     Dosage: C1 D15
     Route: 042
     Dates: start: 20141209, end: 20141209
  29. PARATABS [Concomitant]
     Route: 048
     Dates: start: 20141222, end: 20141222
  30. PARATABS [Concomitant]
     Route: 048
     Dates: start: 20150320, end: 20150320
  31. HISTEC [Concomitant]
     Active Substance: CETIRIZINE HYDROCHLORIDE
     Indication: PROPHYLAXIS
     Route: 048
     Dates: start: 20141124, end: 20141124
  32. HISTEC [Concomitant]
     Active Substance: CETIRIZINE HYDROCHLORIDE
     Route: 048
     Dates: start: 20141209, end: 20141209
  33. HISTEC [Concomitant]
     Active Substance: CETIRIZINE HYDROCHLORIDE
     Route: 048
     Dates: start: 20141222, end: 20141222
  34. ZOFRAN [Concomitant]
     Active Substance: ONDANSETRON HYDROCHLORIDE
     Indication: PROPHYLAXIS
     Route: 048
     Dates: start: 20141125, end: 20141125
  35. VALTREX [Concomitant]
     Active Substance: VALACYCLOVIR HYDROCHLORIDE
     Route: 048
     Dates: start: 20141124, end: 20150613
  36. SOLU-MEDROL [Concomitant]
     Active Substance: METHYLPREDNISOLONE SODIUM SUCCINATE
     Route: 042
     Dates: start: 20141209, end: 20141209
  37. SOLU-MEDROL [Concomitant]
     Active Substance: METHYLPREDNISOLONE SODIUM SUCCINATE
     Route: 042
     Dates: start: 20150420, end: 20150420

REACTIONS (3)
  - Febrile neutropenia [Recovered/Resolved]
  - Cytokine release syndrome [Recovered/Resolved]
  - Neutropenia [Recovered/Resolved]

NARRATIVE: CASE EVENT DATE: 20141124
